FAERS Safety Report 24725229 (Version 1)
Quarter: 2024Q4

REPORT INFORMATION
  Report Type: Spontaneous
  Country: FR (occurrence: FR)
  Receive Date: 20241212
  Receipt Date: 20241212
  Transmission Date: 20250114
  Serious: Yes (Other)
  Sender: AUROBINDO
  Company Number: FR-AFSSAPS-RN2024001321

PATIENT
  Age: 84 Year
  Sex: Female

DRUGS (6)
  1. ASPIRIN [Suspect]
     Active Substance: ASPIRIN
     Indication: Product used for unknown indication
     Dosage: 1 DOSAGE FORM [1 CP]
     Route: 048
     Dates: start: 20241014, end: 20241014
  2. ATORVASTATIN [Suspect]
     Active Substance: ATORVASTATIN
     Indication: Product used for unknown indication
     Dosage: 80 MILLIGRAM [1 CP DE 80 MG]
     Route: 048
     Dates: start: 20241014, end: 20241014
  3. FESOTERODINE FUMARATE [Suspect]
     Active Substance: FESOTERODINE FUMARATE
     Indication: Product used for unknown indication
     Dosage: 4 MILLIGRAM [1 CP DE 4 MG]
     Route: 048
     Dates: start: 20241014, end: 20241014
  4. MIANSERIN [Suspect]
     Active Substance: MIANSERIN
     Indication: Product used for unknown indication
     Dosage: 30 MILLIGRAM [1 CP DE 30 MG]
     Route: 048
     Dates: start: 20241014, end: 20241014
  5. PLAVIX [Suspect]
     Active Substance: CLOPIDOGREL BISULFATE
     Indication: Product used for unknown indication
     Dosage: 1 DOSAGE FORM [1 CP]
     Route: 048
     Dates: start: 20241014, end: 20241014
  6. ALPRAZOLAM [Concomitant]
     Active Substance: ALPRAZOLAM
     Indication: Product used for unknown indication
     Dosage: 0.25 MILLIGRAM [1 CP DE 0.25 MG]
     Route: 048
     Dates: start: 20241014, end: 20241014

REACTIONS (3)
  - Cognitive disorder [Recovered/Resolved]
  - Hypertension [Recovered/Resolved]
  - Medication error [Recovered/Resolved]

NARRATIVE: CASE EVENT DATE: 20241014
